FAERS Safety Report 10662100 (Version 2)
Quarter: 2015Q1

REPORT INFORMATION
  Report Type: Spontaneous
  Country: US (occurrence: US)
  Receive Date: 20141218
  Receipt Date: 20150204
  Transmission Date: 20150720
  Serious: No
  Sender: FDA-Public Use
  Company Number: US-PFIZER INC-2014343090

PATIENT
  Age: 21 Year
  Sex: Female
  Weight: 60 kg

DRUGS (20)
  1. OXYCODONE [Concomitant]
     Active Substance: OXYCODONE
     Dosage: 10 MG, 4X/DAY
  2. EXCEDRIN [Concomitant]
     Active Substance: ACETAMINOPHEN\ASPIRIN\CAFFEINE
  3. LIDOCAINE. [Concomitant]
     Active Substance: LIDOCAINE
     Dosage: 5 %, 12 HOURS ON AND 12 HOURS OFF
     Route: 062
  4. ENOXAPARIN [Concomitant]
     Active Substance: ENOXAPARIN
     Dosage: 40 MG, UNK
  5. LANTUS SOLOSTAR [Concomitant]
     Active Substance: INSULIN GLARGINE
     Dosage: 12 IU, 1X/DAY
  6. NOVOLOG [Concomitant]
     Active Substance: INSULIN ASPART
     Indication: BLOOD GLUCOSE INCREASED
     Dosage: 1-4 UNITS AS NEEDED DAILY
  7. LANTUS SOLOSTAR [Concomitant]
     Active Substance: INSULIN GLARGINE
     Indication: TYPE 1 DIABETES MELLITUS
     Dosage: 10 UNITS, DAILY
  8. MULTIVITAMINS [Concomitant]
     Active Substance: VITAMINS
     Dosage: UNK, DAILY
  9. GABAPENTIN. [Suspect]
     Active Substance: GABAPENTIN
     Indication: PHANTOM PAIN
     Dosage: 300 MG, 2X/DAY
     Dates: start: 2014
  10. OXYCONTIN ER [Concomitant]
     Dosage: 30 MG, 3X/DAY
  11. VITAMIN C [Concomitant]
     Active Substance: ASCORBIC ACID
     Dosage: 500 MG, DAILY
  12. NEXIUM [Concomitant]
     Active Substance: ESOMEPRAZOLE MAGNESIUM
     Dosage: 40 MG, 1X/DAY
  13. NOVOLOG [Concomitant]
     Active Substance: INSULIN ASPART
     Dosage: 1 TO 5 UNITS, 3 TO 5 TIMES A DAY AS NEEDED
  14. ONDANSETRON [Concomitant]
     Active Substance: ONDANSETRON
     Dosage: 4 MG, DAILY
  15. LORAZEPAM. [Concomitant]
     Active Substance: LORAZEPAM
     Dosage: .5 MG, ONE EVERY EIGHT HOURS AS NEEDED, TAKES ONE DAILY AT BEDTIME
  16. GABAPENTIN. [Suspect]
     Active Substance: GABAPENTIN
     Indication: NEURALGIA
     Dosage: 600 MG, 3X/DAY
     Dates: end: 20141204
  17. PROMETHAZINE [Concomitant]
     Active Substance: PROMETHAZINE\PROMETHAZINE HYDROCHLORIDE
     Dosage: 25 MG, 3X/DAY
  18. SIMETHICONE [Concomitant]
     Active Substance: DIMETHICONE\SILICON DIOXIDE\SIMETHICONE
     Dosage: 125 MG, AS NEEDED
  19. TRANSDERM SCOPOLAMINE [Concomitant]
     Dosage: 1.5 MG, ONCE EVERY THREE DAYS
  20. ZENPEP DR [Concomitant]
     Dosage: DR 25000 UNITS CAPS ONE WITH FOOD

REACTIONS (3)
  - Dizziness [Unknown]
  - Drug ineffective [Unknown]
  - Nausea [Unknown]
